FAERS Safety Report 10529737 (Version 1)
Quarter: 2014Q4

REPORT INFORMATION
  Report Type: Spontaneous
  Country: US (occurrence: None)
  Receive Date: 20141020
  Receipt Date: 20141020
  Transmission Date: 20150528
  Serious: Yes (Death, Hospitalization, Other)
  Sender: FDA-Public Use
  Company Number: None

PATIENT
  Age: 52 Year
  Sex: Male
  Weight: 78.93 kg

DRUGS (5)
  1. ZYPREXA [Suspect]
     Active Substance: OLANZAPINE
     Indication: BIPOLAR DISORDER
     Dosage: 2.5 ML ?1 PILL?5 PILLS PER DAY?BY MOUTH, IF DIDN^T NEED IT OR WANT IT INJECTION??THERAPY?3/14/2014 ?DIED DUE TO IT
     Route: 048
     Dates: start: 20140314
  2. CHROMIUM [Concomitant]
     Active Substance: CHROMIC CHLORIDE\CHROMIUM
  3. GARLIC. [Concomitant]
     Active Substance: GARLIC
  4. ZYPREXA [Suspect]
     Active Substance: OLANZAPINE
     Indication: SCHIZOAFFECTIVE DISORDER
     Dosage: 2.5 ML ?1 PILL?5 PILLS PER DAY?BY MOUTH, IF DIDN^T NEED IT OR WANT IT INJECTION??THERAPY?3/14/2014 ?DIED DUE TO IT
     Route: 048
     Dates: start: 20140314
  5. ASPIRIN. [Concomitant]
     Active Substance: ASPIRIN

REACTIONS (5)
  - Tremor [None]
  - Muscle rigidity [None]
  - Refusal of treatment by patient [None]
  - Drooling [None]
  - Gait disturbance [None]

NARRATIVE: CASE EVENT DATE: 20140312
